FAERS Safety Report 7983129-0 (Version None)
Quarter: 2011Q4

REPORT INFORMATION
  Report Type: 
  Country: None (occurrence: None)
  Receive Date: 20111215
  Receipt Date: 20111213
  Transmission Date: 20120403
  Serious: Yes (Other)
  Sender: FDA-Public Use
  Company Number: JP-BAYER-2011-026728

PATIENT
  Age: 67 Year
  Sex: Male
  Weight: 81 kg

DRUGS (4)
  1. SUMIFERON [Concomitant]
     Dosage: 300 MIU, TIW
     Route: 042
     Dates: start: 20111012
  2. NEXAVAR [Suspect]
     Dosage: UNK
     Route: 048
     Dates: end: 20110929
  3. NEXAVAR [Suspect]
     Indication: RENAL CELL CARCINOMA
     Dosage: 400 MG, BID
     Route: 048
     Dates: start: 20110125, end: 20110307
  4. NEXAVAR [Suspect]
     Dosage: 400 MG, QD
     Route: 048

REACTIONS (2)
  - PALMAR-PLANTAR ERYTHRODYSAESTHESIA SYNDROME [None]
  - NEPHROTIC SYNDROME [None]
